FAERS Safety Report 5103014-1 (Version None)
Quarter: 2006Q3

REPORT INFORMATION
  Report Type: 
  Country: None (occurrence: None)
  Receive Date: 20060908
  Receipt Date: 20060817
  Transmission Date: 20061208
  Serious: Yes (Other)
  Sender: FDA-Public Use
  Company Number: 2006SP000579

PATIENT
  Age: 18 Year
  Sex: Female

DRUGS (1)
  1. NASONEX [Suspect]
     Indication: CHRONIC SINUSITIS
     Dosage: 3 DF; QD; NAS
     Route: 045

REACTIONS (1)
  - BRONCHIAL HYPERREACTIVITY [None]
